FAERS Safety Report 7969212-4 (Version None)
Quarter: 2011Q4

REPORT INFORMATION
  Report Type: 
  Country: None (occurrence: None)
  Receive Date: 20111209
  Receipt Date: 20111205
  Transmission Date: 20120403
  Serious: Yes (Life-Threatening)
  Sender: FDA-Public Use
  Company Number: FR-ASTRAZENECA-2011SE72082

PATIENT
  Age: 29295 Day
  Sex: Female

DRUGS (8)
  1. PROTELOS [Suspect]
     Indication: OSTEOPOROSIS
     Route: 048
     Dates: start: 20101210, end: 20110906
  2. OMEPRAZOLE [Suspect]
     Route: 048
     Dates: start: 20091007, end: 20110906
  3. PIASCLEDINE [Suspect]
     Indication: OSTEOARTHRITIS
     Route: 048
     Dates: end: 20110912
  4. UN ALPHA [Suspect]
     Indication: RENAL FAILURE
     Route: 048
     Dates: end: 20110912
  5. NEBIVOLOL HCL [Concomitant]
     Route: 048
     Dates: start: 20110907
  6. ACETAMINOPHEN [Concomitant]
     Dosage: AS REQUIRED
     Route: 048
  7. LEVOTHYROXINE SODIUM [Concomitant]
     Route: 048
     Dates: start: 20110907
  8. GAVISCON [Concomitant]
     Dosage: AS REQUIRED
     Route: 048

REACTIONS (1)
  - BONE MARROW FAILURE [None]
